FAERS Safety Report 8493313 (Version 2)
Quarter: 2013Q1

REPORT INFORMATION
  Report Type: Spontaneous
  Country: US (occurrence: None)
  Receive Date: 20120327
  Receipt Date: 20130206
  Transmission Date: 20140127
  Serious: Yes (Death, Hospitalization, Other)
  Sender: FDA-Public Use
  Company Number: 2011PROUSA00878

PATIENT
  Age: 75 Year
  Sex: Male
  Weight: 58 kg

DRUGS (8)
  1. PROVENGE [Suspect]
     Indication: PROSTATE CANCER METASTATIC
     Dosage: 250 ML, SINGLE, INTRAVENOUS
     Route: 042
     Dates: start: 20111031, end: 20111031
  2. ALPRAZOLAM (ALPRAZOLAM) [Concomitant]
  3. BONIVA [Concomitant]
  4. FIRMAGON (DEGRAELIX ACETATE) [Concomitant]
  5. PAROXETINE HYDROCHLORIDE (PAROXETINE HYDROCHLORDIE) [Concomitant]
  6. TAMSULOSIN HCL (TAMSULOSIN HYDROCHLORIDE) [Concomitant]
  7. VITAMIN C [Concomitant]
  8. CHOLECALCIFEROL (CHOLECALCIFEROL) [Concomitant]

REACTIONS (21)
  - Influenza like illness [None]
  - General physical health deterioration [None]
  - Osteopenia [None]
  - Nocturia [None]
  - Urge incontinence [None]
  - Nausea [None]
  - Fatigue [None]
  - Decreased appetite [None]
  - Haematuria [None]
  - Vomiting [None]
  - Back pain [None]
  - Haematemesis [None]
  - Pain [None]
  - Tachycardia [None]
  - Hypotension [None]
  - Haemoglobin decreased [None]
  - Viral infection [None]
  - Dehydration [None]
  - Chronic obstructive pulmonary disease [None]
  - Atrial fibrillation [None]
  - Disease progression [None]
